FAERS Safety Report 5321117-3 (Version None)
Quarter: 2007Q2

REPORT INFORMATION
  Report Type: 
  Country: None (occurrence: None)
  Receive Date: 20070510
  Receipt Date: 20070504
  Transmission Date: 20071010
  Serious: Yes (Other)
  Sender: FDA-Public Use
  Company Number: CA-BAYER-200710229GDS

PATIENT

DRUGS (4)
  1. ASPIRIN [Suspect]
     Indication: MYOCARDIAL INFARCTION
     Route: 065
  2. ASPIRIN [Suspect]
     Route: 065
  3. HEPARIN [Suspect]
     Indication: MYOCARDIAL INFARCTION
     Route: 065
  4. TNKASE [Suspect]
     Indication: MYOCARDIAL INFARCTION
     Route: 065

REACTIONS (2)
  - CEREBROVASCULAR ACCIDENT [None]
  - HAEMORRHAGE INTRACRANIAL [None]
